FAERS Safety Report 13792756 (Version 1)
Quarter: 2017Q3

REPORT INFORMATION
  Report Type: Spontaneous
  Country: GB (occurrence: GB)
  Receive Date: 20170726
  Receipt Date: 20170726
  Transmission Date: 20171127
  Serious: Yes (Other)
  Sender: FDA-Public Use
  Company Number: GB-PFIZER INC-1544436

PATIENT

DRUGS (2)
  1. OFLOXACIN. [Concomitant]
     Active Substance: OFLOXACIN
     Indication: PYREXIA
     Dosage: 200 MG, FREQ: 2 DAY; INTERVAL: 1
  2. VANCOMYCIN HCL [Suspect]
     Active Substance: VANCOMYCIN HYDROCHLORIDE
     Indication: PYREXIA
     Dosage: 60 MG/KG, DAILY
     Route: 042

REACTIONS (2)
  - Hypotension [Unknown]
  - Cyanosis [Unknown]
